FAERS Safety Report 7476751-1 (Version None)
Quarter: 2011Q2

REPORT INFORMATION
  Report Type: 
  Country: None (occurrence: None)
  Receive Date: 20110512
  Receipt Date: 20110503
  Transmission Date: 20111010
  Serious: Yes (Death)
  Sender: FDA-Public Use
  Company Number: TW-BAXTER-2011BH012101

PATIENT
  Sex: Male

DRUGS (8)
  1. NUTRINEAL [Suspect]
     Indication: PERITONEAL DIALYSIS
     Route: 033
     Dates: start: 20090301, end: 20110101
  2. DIANEAL PD-2 W/ DEXTROSE 1.5% [Suspect]
     Route: 033
     Dates: start: 20090301, end: 20110101
  3. DIANEAL [Suspect]
     Route: 033
     Dates: start: 20090301, end: 20110101
  4. DIANEAL [Suspect]
     Indication: PERITONEAL DIALYSIS
     Route: 033
     Dates: start: 20090301, end: 20110101
  5. DIANEAL PD-2 W/ DEXTROSE 1.5% [Suspect]
     Indication: PERITONEAL DIALYSIS
     Route: 033
     Dates: start: 20090301, end: 20110101
  6. EXTRANEAL [Suspect]
     Indication: PERITONEAL DIALYSIS
     Route: 033
     Dates: start: 20090301, end: 20110101
  7. EXTRANEAL [Suspect]
     Route: 033
     Dates: start: 20090301, end: 20110101
  8. NUTRINEAL [Suspect]
     Route: 033
     Dates: start: 20090301, end: 20110101

REACTIONS (1)
  - CHOKING [None]
